FAERS Safety Report 14561531 (Version 2)
Quarter: 2018Q1

REPORT INFORMATION
  Report Type: Spontaneous
  Country: US (occurrence: US)
  Receive Date: 20180222
  Receipt Date: 20180322
  Transmission Date: 20180509
  Serious: Yes (Other)
  Sender: FDA-Public Use
  Company Number: US-GLENMARK PHARMACEUTICALS-2018GMK032424

PATIENT

DRUGS (1)
  1. MUPIROCIN. [Suspect]
     Active Substance: MUPIROCIN
     Indication: SKIN GRAFT
     Dosage: 1 DF, TID
     Route: 061
     Dates: start: 20180125, end: 20180208

REACTIONS (4)
  - Product use in unapproved indication [Unknown]
  - Deafness transitory [Recovered/Resolved]
  - Incorrect route of drug administration [Unknown]
  - Cerumen impaction [Recovered/Resolved]

NARRATIVE: CASE EVENT DATE: 20180125
